FAERS Safety Report 6766435-7 (Version None)
Quarter: 2010Q2

REPORT INFORMATION
  Report Type: 
  Country: None (occurrence: None)
  Receive Date: 20100611
  Receipt Date: 20100603
  Transmission Date: 20101027
  Serious: Yes (Hospitalization)
  Sender: FDA-Public Use
  Company Number: IT-JNJFOC-20100602826

PATIENT
  Sex: Female

DRUGS (4)
  1. LOPERAMIDE [Suspect]
     Indication: DIARRHOEA
     Route: 048
  2. CAMPTOSAR [Suspect]
     Indication: COLORECTAL CANCER
     Route: 042
  3. CAMPTOSAR [Suspect]
     Route: 042
  4. CAPECITABINE [Suspect]
     Indication: COLORECTAL CANCER
     Route: 048

REACTIONS (2)
  - INAPPROPRIATE SCHEDULE OF DRUG ADMINISTRATION [None]
  - INTESTINAL OBSTRUCTION [None]
